FAERS Safety Report 5825915-9 (Version None)
Quarter: 2008Q3

REPORT INFORMATION
  Report Type: 
  Country: None (occurrence: None)
  Receive Date: 20080723
  Receipt Date: 20080708
  Transmission Date: 20090109
  Serious: Yes (Hospitalization)
  Sender: FDA-Public Use
  Company Number: 2008S1011984

PATIENT
  Age: 75 Year
  Sex: Male

DRUGS (7)
  1. METFORMIN HCL [Suspect]
     Indication: DIABETES MELLITUS
     Dosage: 850 MG; TWICE A DAY
     Dates: start: 20040101
  2. CLOPIDOGREL [Concomitant]
  3. MOLSIDOMINE (MOLSIDOMINE) [Concomitant]
  4. ENALAPRIL MALEATE [Concomitant]
  5. ACEBUTOLOL [Concomitant]
  6. WARFARIN SODIUM [Concomitant]
  7. FLUDARABINE PHOSPHATE [Concomitant]

REACTIONS (3)
  - AUTOIMMUNE NEUTROPENIA [None]
  - DIABETES MELLITUS [None]
  - SPLENIC MARGINAL ZONE LYMPHOMA [None]
